FAERS Safety Report 18688523 (Version 1)
Quarter: 2020Q4

REPORT INFORMATION
  Report Type: Report from Study
  Country: CN (occurrence: CN)
  Receive Date: 20201231
  Receipt Date: 20201231
  Transmission Date: 20210114
  Serious: Yes (Death, Other)
  Sender: FDA-Public Use
  Company Number: CN-SUN PHARMACEUTICAL INDUSTRIES LTD-2020R1-273683

PATIENT
  Age: 66 Year
  Sex: Female

DRUGS (2)
  1. PREDNISONE. [Suspect]
     Active Substance: PREDNISONE
     Indication: AUTOIMMUNE HAEMOLYTIC ANAEMIA
     Dosage: UNK 1 MG/ KG X D FOR 14 DAYS, 0.5 MG/KG X D FOR 14 DAYS)
     Route: 065
  2. CYCLOPHOSPHAMIDE. [Suspect]
     Active Substance: CYCLOPHOSPHAMIDE
     Indication: AUTOIMMUNE HAEMOLYTIC ANAEMIA
     Dosage: UNK (1 G AS AN INTRAVENOUS INFUSION ON DAY 10, 20, 30 ALONG)
     Route: 042

REACTIONS (5)
  - Cytomegalovirus test positive [Unknown]
  - Pulmonary fibrosis [Fatal]
  - Stenotrophomonas test positive [Unknown]
  - Respiratory failure [Fatal]
  - Enterobacter test positive [Unknown]
